FAERS Safety Report 6894599-3 (Version None)
Quarter: 2010Q3

REPORT INFORMATION
  Report Type: 
  Country: None (occurrence: None)
  Receive Date: 20100802
  Receipt Date: 20100728
  Transmission Date: 20110219
  Serious: Yes (Other)
  Sender: FDA-Public Use
  Company Number: NL-ROXANE LABORATORIES, INC.-2010-RO-00931RO

PATIENT
  Age: 65 Year
  Sex: Male

DRUGS (4)
  1. CYCLOPHOSPHAMIDE [Suspect]
     Indication: GLOMERULONEPHRITIS
     Route: 048
  2. AZATHIOPRINE [Suspect]
     Indication: GLOMERULONEPHRITIS
  3. PREDNISONE [Suspect]
  4. CORTICOSTEROIDS [Suspect]
     Indication: GLOMERULONEPHRITIS

REACTIONS (1)
  - PANCREATITIS ACUTE [None]
